FAERS Safety Report 8924468 (Version 3)
Quarter: 2012Q4

REPORT INFORMATION
  Report Type: 
  Country: JP (occurrence: JP)
  Receive Date: 20121126
  Receipt Date: 20121227
  Transmission Date: 20130627
  Serious: Yes (Death)
  Sender: FDA-Public Use
  Company Number: JP-PFIZER INC-2012295111

PATIENT
  Age: 37 Year
  Sex: Male
  Weight: 65 kg

DRUGS (7)
  1. LYRICA [Suspect]
     Indication: POST HERPETIC NEURALGIA
     Dosage: 25 mg, 2x/day
     Route: 048
     Dates: start: 20121009, end: 20121108
  2. METHYLCOBALAMIN [Suspect]
     Indication: NEUROPATHY PERIPHERAL
     Dosage: 500 mg, 3x/day
     Route: 048
     Dates: start: 20121009, end: 20121108
  3. FAMVIR [Concomitant]
     Indication: HERPES ZOSTER
     Dosage: 500 mg, 3x/day
     Route: 048
     Dates: start: 20121009, end: 20121010
  4. CALONAL [Concomitant]
     Indication: POST HERPETIC NEURALGIA
     Dosage: 400 mg, 2x/day
     Route: 048
     Dates: start: 20121009, end: 20121016
  5. MUCOSTA [Concomitant]
     Indication: GASTRITIS
     Dosage: 100 mg, 3x/day
     Route: 048
     Dates: start: 20121009, end: 20121016
  6. ACICLOVIR [Concomitant]
     Indication: HERPES ZOSTER
     Dosage: 250 mg, 3x/day
     Route: 041
     Dates: start: 20121009, end: 20121014
  7. HALCION [Concomitant]
     Indication: INSOMNIA
     Dosage: 0.125 mg, 1x/day
     Route: 048
     Dates: start: 20121012, end: 20121014

REACTIONS (3)
  - Completed suicide [Fatal]
  - Eye pain [Unknown]
  - Asphyxia [None]
